FAERS Safety Report 12321053 (Version 1)
Quarter: 2016Q2

REPORT INFORMATION
  Report Type: Spontaneous
  Country: US (occurrence: US)
  Receive Date: 20160502
  Receipt Date: 20160502
  Transmission Date: 20160815
  Serious: Yes (Other)
  Sender: FDA-Public Use
  Company Number: US-AMGEN-USASP2016053110

PATIENT
  Age: 77 Year
  Sex: Female

DRUGS (2)
  1. DIURETIC [Concomitant]
     Active Substance: UNSPECIFIED INGREDIENT
     Route: 065
  2. PROLIA [Suspect]
     Active Substance: DENOSUMAB
     Indication: OSTEOPENIA
     Dosage: UNK
     Route: 065

REACTIONS (6)
  - Tooth disorder [Unknown]
  - Headache [Unknown]
  - Tooth abscess [Unknown]
  - Blood pressure increased [Unknown]
  - Feeling abnormal [Unknown]
  - Off label use [Unknown]

NARRATIVE: CASE EVENT DATE: 201604
